FAERS Safety Report 5130165-8 (Version None)
Quarter: 2006Q4

REPORT INFORMATION
  Report Type: 
  Country: None (occurrence: None)
  Receive Date: 20061013
  Receipt Date: 20060926
  Transmission Date: 20070319
  Serious: Yes (Hospitalization, Other)
  Sender: FDA-Public Use
  Company Number: VNL_0224_2006

PATIENT
  Age: 79 Year
  Sex: Female
  Weight: 115 kg

DRUGS (15)
  1. APOKYN [Suspect]
     Indication: PARKINSON'S DISEASE
     Dosage: 0.05 ML QDAY SC
     Route: 058
     Dates: start: 20060913, end: 20060922
  2. COMPTAN [Concomitant]
  3. SINEMET [Concomitant]
  4. ZELNORM [Concomitant]
  5. TRAMADOL [Concomitant]
  6. AMANTADINE HCL [Concomitant]
  7. AMIODARONE HCL [Concomitant]
  8. NEXIUM [Concomitant]
  9. ENULOSE [Concomitant]
  10. GLYCOLAX [Concomitant]
  11. SINGULAIR [Concomitant]
  12. RENAGEL [Concomitant]
  13. MELATONIN [Concomitant]
  14. SEROQUEL [Concomitant]
  15. GABAPENTIN [Concomitant]

REACTIONS (2)
  - FALL [None]
  - HIP FRACTURE [None]
